FAERS Safety Report 15660853 (Version 2)
Quarter: 2018Q4

REPORT INFORMATION
  Report Type: Report from Study
  Country: GB (occurrence: GB)
  Receive Date: 20181127
  Receipt Date: 20181129
  Transmission Date: 20190205
  Serious: No
  Sender: FDA-Public Use
  Company Number: GB-B.I. PHARMACEUTICALS,INC./RIDGEFIELD-2018-BI-056811

PATIENT
  Age: 81 Year
  Sex: Female

DRUGS (5)
  1. AFATINIB [Suspect]
     Active Substance: AFATINIB
     Route: 065
  2. RANITIDINE. [Concomitant]
     Active Substance: RANITIDINE
     Indication: GASTROOESOPHAGEAL REFLUX DISEASE
     Dosage: FREQUENCY: ONE OR TWO A DAY
     Route: 065
  3. AFATINIB [Suspect]
     Active Substance: AFATINIB
     Indication: NON-SMALL CELL LUNG CANCER
     Route: 065
     Dates: start: 20180321
  4. AFATINIB [Suspect]
     Active Substance: AFATINIB
     Route: 065
  5. LEVOTHYROXINE. [Concomitant]
     Active Substance: LEVOTHYROXINE
     Indication: GASTROOESOPHAGEAL REFLUX DISEASE
     Dosage: FREQUENCY: ONE OR TWO A DAY
     Route: 065

REACTIONS (9)
  - Weight decreased [Unknown]
  - Lip swelling [Unknown]
  - Skin reaction [Unknown]
  - Nail disorder [Unknown]
  - Diarrhoea [Unknown]
  - Stomatitis [Unknown]
  - Rhinorrhoea [Unknown]
  - Mouth swelling [Unknown]
  - Epistaxis [Unknown]
